FAERS Safety Report 23277430 (Version 1)
Quarter: 2023Q4

REPORT INFORMATION
  Report Type: Spontaneous
  Country: US (occurrence: None)
  Receive Date: 20231208
  Receipt Date: 20231208
  Transmission Date: 20240109
  Serious: Yes (Hospitalization)
  Sender: FDA-Public Use
  Company Number: None

PATIENT
  Age: 41 Year
  Sex: Female
  Weight: 66.6 kg

DRUGS (1)
  1. CYTARABINE [Suspect]
     Active Substance: CYTARABINE
     Dates: end: 20231127

REACTIONS (4)
  - Febrile neutropenia [None]
  - Myalgia [None]
  - Chills [None]
  - SARS-CoV-2 test positive [None]

NARRATIVE: CASE EVENT DATE: 20231204
